FAERS Safety Report 16912590 (Version 1)
Quarter: 2019Q4

REPORT INFORMATION
  Report Type: Report from Study
  Country: US (occurrence: US)
  Receive Date: 20191014
  Receipt Date: 20191014
  Transmission Date: 20200122
  Serious: Yes (Hospitalization, Other)
  Sender: FDA-Public Use
  Company Number: US-GLAXOSMITHKLINE-2019-TSO02797-US

PATIENT
  Age: 66 Year
  Sex: Female
  Weight: 69.44 kg

DRUGS (6)
  1. NIRAPARIB [Suspect]
     Active Substance: NIRAPARIB
     Indication: NEOPLASM
     Dosage: 300 MG, UNK
     Route: 048
     Dates: start: 20190415, end: 20190630
  2. HEPARIN [Concomitant]
     Active Substance: HEPARIN SODIUM
     Indication: PROPHYLAXIS
     Dosage: 5000 UNITS, THRICE DAILY
     Route: 058
     Dates: start: 20190725, end: 20190731
  3. HEPARIN [Concomitant]
     Active Substance: HEPARIN SODIUM
     Indication: EMBOLISM
  4. ZOFRAN [Concomitant]
     Active Substance: ONDANSETRON HYDROCHLORIDE
     Indication: NAUSEA
     Dosage: 4 MG, PRN
     Route: 042
     Dates: start: 20190725, end: 20190726
  5. ELECTROLYTE                        /00909901/ [Concomitant]
     Dosage: 1000 ML, ONCE
     Route: 042
     Dates: start: 20190725, end: 20190725
  6. ELECTROLYTE                        /00909901/ [Concomitant]
     Indication: ACUTE KIDNEY INJURY
     Dosage: 125 MG, Q1HOUR
     Route: 042
     Dates: start: 20190725, end: 20190726

REACTIONS (1)
  - Hepatic failure [Recovered/Resolved]

NARRATIVE: CASE EVENT DATE: 20190726
